FAERS Safety Report 9741492 (Version 3)
Quarter: 2014Q1

REPORT INFORMATION
  Report Type: Report from Study
  Country: PL (occurrence: PL)
  Receive Date: 20131209
  Receipt Date: 20140207
  Transmission Date: 20141002
  Serious: Yes (Hospitalization)
  Sender: FDA-Public Use
  Company Number: PL-BRISTOL-MYERS SQUIBB COMPANY-19872456

PATIENT
  Age: 65 Year
  Sex: Male

DRUGS (11)
  1. ETOPOSIDE [Suspect]
     Indication: SMALL CELL LUNG CANCER
     Dosage: STOP DATE-8NOV2013,NO.OF COURSE-1
     Route: 042
     Dates: start: 20131106
  2. CISPLATIN [Suspect]
     Indication: SMALL CELL LUNG CANCER
     Dosage: STOP DATE-6NOV2013,NO.OF COURSE-1
     Route: 042
     Dates: start: 20131106
  3. BISOPROLOL [Concomitant]
     Dates: start: 201310
  4. SPIRONOLACTONE [Concomitant]
     Dates: start: 201310
  5. OMEPRAZOL [Concomitant]
     Dates: start: 201310
  6. THIOCODIN [Concomitant]
     Dates: start: 201310
  7. IPRATROPIUM [Concomitant]
     Dates: start: 201310
  8. FORMOTEROL [Concomitant]
     Dates: start: 201310
  9. POTASSIUM [Concomitant]
     Dates: start: 201310
  10. DEXAMETHASONE [Concomitant]
     Indication: PREMEDICATION
     Dates: start: 20131106, end: 20131106
  11. ONDANSETRON [Concomitant]
     Dates: start: 20131106, end: 20131108

REACTIONS (1)
  - Blood creatinine increased [Recovered/Resolved]
